FAERS Safety Report 9242618 (Version 2)
Quarter: 2013Q3

REPORT INFORMATION
  Report Type: Report from Study
  Country: CA (occurrence: CA)
  Receive Date: 20130419
  Receipt Date: 20130709
  Transmission Date: 20140515
  Serious: Yes (Other)
  Sender: FDA-Public Use
  Company Number: CA-GLAXOSMITHKLINE-A1020570A

PATIENT
  Age: 65 Year
  Sex: Female

DRUGS (1)
  1. VOTRIENT [Suspect]
     Indication: SARCOMA
     Dosage: 800MG PER DAY
     Route: 065
     Dates: start: 20121129, end: 20130418

REACTIONS (21)
  - Urinary tract infection [Unknown]
  - Diarrhoea [Recovered/Resolved]
  - Malaise [Unknown]
  - Abdominal distension [Unknown]
  - Fall [Unknown]
  - Musculoskeletal disorder [Unknown]
  - Wheelchair user [Unknown]
  - Nausea [Recovered/Resolved]
  - Vomiting [Unknown]
  - Abdominal pain upper [Unknown]
  - Asthenia [Unknown]
  - Cough [Unknown]
  - Dyspnoea [Unknown]
  - Chest pain [Unknown]
  - Alopecia [Unknown]
  - Epistaxis [Unknown]
  - Dysphonia [Unknown]
  - Vision blurred [Unknown]
  - Pain in extremity [Unknown]
  - Gait disturbance [Unknown]
  - Cyst [Unknown]
